FAERS Safety Report 10028262 (Version 1)
Quarter: 2014Q1

REPORT INFORMATION
  Report Type: Spontaneous
  Country: US (occurrence: None)
  Receive Date: 20140307
  Receipt Date: 20140307
  Transmission Date: 20141002
  Serious: Yes (Other)
  Sender: FDA-Public Use
  Company Number: 2014-US-002547

PATIENT
  Age: 48 Year
  Sex: Female

DRUGS (2)
  1. XYREM (SODIUM OXYBATE) ORAL SOLUTION, 500MG/ML [Suspect]
     Indication: NARCOLEPSY
     Route: 048
     Dates: start: 200410
  2. LEVAQUIN (LEVOFLOXACIN) [Suspect]
     Indication: PREOPERATIVE CARE
     Route: 048

REACTIONS (2)
  - Mastectomy [None]
  - Drug hypersensitivity [None]
